FAERS Safety Report 5058344-9 (Version None)
Quarter: 2006Q2

REPORT INFORMATION
  Report Type: 
  Country: None (occurrence: None)
  Receive Date: 20060627
  Receipt Date: 20051024
  Transmission Date: 20061013
  Serious: Yes (Death, Hospitalization)
  Sender: FDA-Public Use
  Company Number: 422304

PATIENT
  Age: 57 Year
  Sex: Female

DRUGS (6)
  1. XELODA [Suspect]
     Indication: BREAST CANCER
     Dosage: ORAL
     Route: 048
     Dates: end: 20050913
  2. HERCEPTIN [Concomitant]
  3. GEMZAR [Concomitant]
  4. ADVAIR DISKUS 100/50 [Concomitant]
  5. ALBUTEROL [Concomitant]
  6. ATROVENT [Concomitant]

REACTIONS (1)
  - DISEASE PROGRESSION [None]
